FAERS Safety Report 16800919 (Version 5)
Quarter: 2020Q4

REPORT INFORMATION
  Report Type: Report from Study
  Country: US (occurrence: US)
  Receive Date: 20190912
  Receipt Date: 20201028
  Transmission Date: 20210113
  Serious: Yes (Life-Threatening, Hospitalization)
  Sender: FDA-Public Use
  Company Number: US-JNJFOC-20190901597

PATIENT
  Age: 54 Year
  Sex: Female
  Weight: 59.02 kg

DRUGS (7)
  1. DARATUMUMAB [Suspect]
     Active Substance: DARATUMUMAB
     Route: 042
     Dates: start: 20191007
  2. LEVOFLOXACIN. [Concomitant]
     Active Substance: LEVOFLOXACIN
     Indication: PNEUMONIA
     Route: 065
     Dates: start: 20190729, end: 20190808
  3. DARATUMUMAB [Suspect]
     Active Substance: DARATUMUMAB
     Indication: PLASMA CELL MYELOMA
     Dosage: ON DAYS 1,15 OF EACH 28-DAY CYCLE
     Route: 042
     Dates: start: 20190325
  4. DEXAMETHASONE. [Concomitant]
     Active Substance: DEXAMETHASONE
     Route: 048
     Dates: start: 20191014
  5. DEXAMETHASONE. [Concomitant]
     Active Substance: DEXAMETHASONE
     Dosage: 1, 8, 15, 22 OF EACH 28-DAY CYCLE  (CYCLE 6)
     Route: 048
     Dates: start: 20190812, end: 20190826
  6. DARATUMUMAB [Suspect]
     Active Substance: DARATUMUMAB
     Dosage: ON DAYS 1, 8, 15, 22 OF EACH 28-DAY CYCLE
     Route: 042
     Dates: start: 20190812, end: 20190826
  7. DEXAMETHASONE. [Concomitant]
     Active Substance: DEXAMETHASONE
     Indication: PLASMA CELL MYELOMA
     Dosage: ON DAYS 1, 8, 15, 22 OF EACH 28-DAY CYCLE  (CYCLE 1)
     Route: 048
     Dates: start: 20190325

REACTIONS (1)
  - Pneumocystis jirovecii pneumonia [Recovered/Resolved]

NARRATIVE: CASE EVENT DATE: 20190826
